FAERS Safety Report 4564228-2 (Version None)
Quarter: 2005Q1

REPORT INFORMATION
  Report Type: 
  Country: None (occurrence: None)
  Receive Date: 20050128
  Receipt Date: 20050118
  Transmission Date: 20050727
  Serious: Yes (Hospitalization)
  Sender: FDA-Public Use
  Company Number: FR-ROCHE-392815

PATIENT
  Age: 89 Year
  Sex: Female

DRUGS (9)
  1. ROCEPHIN [Suspect]
     Indication: URINARY TRACT INFECTION
     Route: 030
     Dates: start: 20041108, end: 20041117
  2. OMEPRAZOLE [Concomitant]
     Indication: DRUG USE FOR UNKNOWN INDICATION
     Dosage: TREATMENT WAS DISCONTINUED AND RESTARTED AFTER EVENT RESOLVED.
     Route: 065
  3. EBIXA [Concomitant]
     Indication: DRUG USE FOR UNKNOWN INDICATION
     Dosage: TREATMENT WAS DISCONTINUED AND RESTARTED AFTER EVENT RESOLVED.
     Route: 065
  4. KARDEGIC [Concomitant]
     Indication: DRUG USE FOR UNKNOWN INDICATION
     Dosage: TREATMENT WAS DISCONTINUED AND RESTARTED AFTER EVENT RESOLVED.
     Route: 065
  5. FIXICAL [Concomitant]
     Dosage: TREATMENT WAS DISCONTINUED AND RESTARTED AFTER EVENT RESOLVED.
  6. PIASCLEDINE [Concomitant]
     Dosage: TREATMENT WAS DISCONTINUED AND RESTARTED AFTER EVENT RESOLVED.
  7. MOVICOL [Concomitant]
     Dosage: TREATMENT WAS DISCONTINUED AND RESTARTED AFTER EVENT RESOLVED.
  8. VEINAMITOL [Concomitant]
     Dosage: TREATMENT WAS DISCONTINUED AND RESTARTED AFTER EVENT RESOLVED.
  9. UTEPLEX [Concomitant]
     Dosage: TREATMENT WAS DISCONTINUED AND RESTARTED AFTER EVENT RESOLVED.

REACTIONS (5)
  - ALANINE AMINOTRANSFERASE INCREASED [None]
  - ASPARTATE AMINOTRANSFERASE INCREASED [None]
  - GAMMA-GLUTAMYLTRANSFERASE INCREASED [None]
  - HEPATITIS [None]
  - JAUNDICE [None]
